FAERS Safety Report 8943263 (Version 1)
Quarter: 2012Q4

REPORT INFORMATION
  Report Type: Spontaneous
  Country: NL (occurrence: None)
  Receive Date: 20121123
  Receipt Date: 20121123
  Transmission Date: 20130627
  Serious: Yes (Other)
  Sender: FDA-Public Use
  Company Number: NL-1195228

PATIENT
  Age: 71 Year
  Sex: Female

DRUGS (4)
  1. TOBRADEX [Suspect]
     Route: 047
  2. ATACAND [Concomitant]
  3. ASCAL [Concomitant]
  4. SIMVASTATINE [Concomitant]

REACTIONS (2)
  - Dacryostenosis acquired [None]
  - Drug interaction [None]
